FAERS Safety Report 26177833 (Version 1)
Quarter: 2025Q4

REPORT INFORMATION
  Report Type: Spontaneous
  Country: EU (occurrence: EU)
  Receive Date: 20251219
  Receipt Date: 20251219
  Transmission Date: 20260117
  Serious: Yes (Other)
  Sender: AUROBINDO
  Company Number: EU-AFSSAPS-PO2025001252

PATIENT
  Age: 71 Year
  Sex: Female
  Weight: 117 kg

DRUGS (2)
  1. ECONAZOLE [Interacting]
     Active Substance: ECONAZOLE
     Indication: Intertrigo
     Dosage: 1 DOSAGE FORM, TWO TIMES A DAY
     Dates: start: 20251120, end: 20251124
  2. FLUINDIONE [Interacting]
     Active Substance: FLUINDIONE
     Indication: Atrial fibrillation
     Dosage: 20 MILLIGRAM, ONCE A DAY
     Route: 061
     Dates: end: 20251124

REACTIONS (2)
  - International normalised ratio increased [Recovered/Resolved]
  - Drug interaction [Recovered/Resolved]

NARRATIVE: CASE EVENT DATE: 20251120
